FAERS Safety Report 8883871 (Version 1)
Quarter: 2012Q4

REPORT INFORMATION
  Report Type: 
  Country: FR (occurrence: FR)
  Receive Date: 20121102
  Receipt Date: 20121102
  Transmission Date: 20130627
  Serious: Yes (Death)
  Sender: FDA-Public Use
  Company Number: FR-SANOFI-AVENTIS-2012SA077814

PATIENT
  Age: 42 Year
  Sex: Male

DRUGS (4)
  1. STILNOX [Suspect]
     Indication: DRUG USE FOR UNKNOWN INDICATION
     Route: 048
     Dates: start: 20120809, end: 20120810
  2. OLANZAPINE [Suspect]
     Indication: DRUG USE FOR UNKNOWN INDICATION
     Route: 048
     Dates: start: 20120801, end: 20120811
  3. OLANZAPINE [Suspect]
     Indication: SCHIZOPHRENIA
     Dosage: 1 tablet (10 mg) twice daily
     Route: 048
     Dates: start: 2003
  4. LOXAPAC [Concomitant]
     Route: 048
     Dates: start: 20120731, end: 20120806

REACTIONS (1)
  - Cardiac death [Fatal]
